FAERS Safety Report 16624412 (Version 1)
Quarter: 2019Q3

REPORT INFORMATION
  Report Type: Spontaneous
  Country: US (occurrence: US)
  Receive Date: 20190611
  Receipt Date: 20190611
  Transmission Date: 20191004
  Serious: No
  Sender: FDA-Public Use
  Company Number: None

PATIENT
  Age: 64 Year
  Sex: Male

DRUGS (1)
  1. VOSEVI [Suspect]
     Active Substance: SOFOSBUVIR\VELPATASVIR\VOXILAPREVIR
     Dates: start: 20190520

REACTIONS (3)
  - Oropharyngeal pain [None]
  - Rhinorrhoea [None]
  - Upper respiratory tract infection [None]

NARRATIVE: CASE EVENT DATE: 20190605
